FAERS Safety Report 6598883-2 (Version None)
Quarter: 2010Q1

REPORT INFORMATION
  Report Type: 
  Country: None (occurrence: None)
  Receive Date: 20100224
  Receipt Date: 20090115
  Transmission Date: 20100710
  Serious: No
  Sender: FDA-Public Use
  Company Number: US-BRISTOL-MYERS SQUIBB COMPANY-14473748

PATIENT
  Sex: Female

DRUGS (2)
  1. GLUCOPHAGE [Suspect]
     Dosage: 2 TABS
  2. GLUCOTROL [Suspect]
     Dosage: GLUCOTROL CR 10MG TABS

REACTIONS (2)
  - FATIGUE [None]
  - INSOMNIA [None]
